FAERS Safety Report 17298884 (Version 1)
Quarter: 2020Q1

REPORT INFORMATION
  Report Type: Spontaneous
  Country: GB (occurrence: GB)
  Receive Date: 20200121
  Receipt Date: 20200121
  Transmission Date: 20200409
  Serious: Yes (Other)
  Sender: FDA-Public Use
  Company Number: GB-MYLANLABS-2020M1005060

PATIENT
  Age: 46 Year
  Sex: Female
  Weight: 98 kg

DRUGS (8)
  1. HYDROCORTISONE. [Concomitant]
     Active Substance: HYDROCORTISONE
     Dosage: 1 DOSAGE FORM  AS DIRECTED
     Dates: start: 20160609
  2. HYDROXOCOBALAMIN [Concomitant]
     Active Substance: HYDROXOCOBALAMIN
     Dosage: UNK    AS DIRECTED
     Dates: start: 20190311
  3. PREGABALIN. [Concomitant]
     Active Substance: PREGABALIN
     Dosage: 3 DOSAGE FORM, QD   AS PER MS TEAM
     Dates: start: 20190515
  4. WHITE SOFT PARAFFIN [Concomitant]
     Active Substance: PARAFFIN
     Dosage: UNK USE UP TO 8 TIMES DAILY ON AFFECTED AREA
     Dates: start: 20160609
  5. CLARITHROMYCIN. [Suspect]
     Active Substance: CLARITHROMYCIN
     Indication: PRODUCT USED FOR UNKNOWN INDICATION
     Dosage: 1000 MILLIGRAM, QD FOR 7 DAYS
     Dates: start: 20191015
  6. TRIMETHOPRIM. [Concomitant]
     Active Substance: TRIMETHOPRIM
     Dosage: 1 DOSAGE FORM, QD   AT NIGHT
     Dates: start: 20130717
  7. OPTIVE [Concomitant]
     Active Substance: CARBOXYMETHYLCELLULOSE SODIUM\GLYCERIN
     Indication: DRY EYE
     Dosage: UNK, PRN AT NIGHT
     Dates: start: 20131203
  8. AMITRIPTYLINE HYDROCHLORIDE. [Concomitant]
     Active Substance: AMITRIPTYLINE HYDROCHLORIDE
     Dosage: UNK  TAKE 3 MORNING AND LUNCHTIME AND 3-5 AT...
     Dates: start: 20171222

REACTIONS (1)
  - Erythema multiforme [Recovering/Resolving]

NARRATIVE: CASE EVENT DATE: 20191018
